FAERS Safety Report 16476989 (Version 3)
Quarter: 2020Q3

REPORT INFORMATION
  Report Type: Spontaneous
  Country: EG (occurrence: EG)
  Receive Date: 20190626
  Receipt Date: 20200724
  Transmission Date: 20201102
  Serious: Yes (Death, Other)
  Sender: FDA-Public Use
  Company Number: EG-SA-2019SA106090

PATIENT

DRUGS (4)
  1. L?CARNITINE [LEVOCARNITINE] [Concomitant]
     Dosage: UNK UNK, UNK
  2. CEREZYME [Suspect]
     Active Substance: IMIGLUCERASE
     Indication: GAUCHER^S DISEASE
     Dosage: 60 U/KG, QOW
     Route: 041
     Dates: start: 20170221, end: 20190108
  3. VITAMIN D [COLECALCIFEROL] [Concomitant]
     Active Substance: CHOLECALCIFEROL
     Dosage: UNK UNK, UNK
  4. VITAMIN B [Concomitant]
     Active Substance: VITAMIN B
     Dosage: UNK UNK, UNK

REACTIONS (12)
  - Choreoathetosis [Not Recovered/Not Resolved]
  - Tremor [Not Recovered/Not Resolved]
  - Developmental delay [Not Recovered/Not Resolved]
  - Product use issue [Unknown]
  - Laboratory test abnormal [Unknown]
  - Death [Fatal]
  - Full blood count abnormal [Recovered/Resolved]
  - Liver disorder [Unknown]
  - Encephalopathy [Unknown]
  - Neurological decompensation [Unknown]
  - Spleen disorder [Unknown]
  - Niemann-Pick disease [Unknown]

NARRATIVE: CASE EVENT DATE: 201807
